FAERS Safety Report 7409955-4 (Version None)
Quarter: 2011Q2

REPORT INFORMATION
  Report Type: 
  Country: None (occurrence: None)
  Receive Date: 20110412
  Receipt Date: 20110407
  Transmission Date: 20111010
  Serious: Yes (Other)
  Sender: FDA-Public Use
  Company Number: BR-PFIZER INC-2011077858

PATIENT
  Age: 58 Year
  Sex: Male

DRUGS (3)
  1. ZETIA [Suspect]
     Route: 048
  2. ZETSIM [Suspect]
     Route: 048
  3. LIPITOR [Suspect]
     Indication: BLOOD CHOLESTEROL
     Route: 048

REACTIONS (4)
  - INSOMNIA [None]
  - OSTEOPENIA [None]
  - DRUG INEFFECTIVE [None]
  - OSTEOARTHRITIS [None]
